FAERS Safety Report 22388777 (Version 1)
Quarter: 2023Q2

REPORT INFORMATION
  Report Type: Spontaneous
  Country: CN (occurrence: CN)
  Receive Date: 20230531
  Receipt Date: 20230531
  Transmission Date: 20230722
  Serious: Yes (Death, Hospitalization)
  Sender: FDA-Public Use
  Company Number: CN-PRAXGEN-2023PPLIT00019

PATIENT
  Age: 75 Year
  Sex: Male

DRUGS (6)
  1. METHYLPREDNISOLONE [Suspect]
     Active Substance: METHYLPREDNISOLONE
     Indication: Pneumonia
     Route: 065
     Dates: start: 20220428, end: 20220430
  2. METHYLPREDNISOLONE [Suspect]
     Active Substance: METHYLPREDNISOLONE
     Route: 065
     Dates: start: 20220423, end: 20220427
  3. PREDNISONE [Suspect]
     Active Substance: PREDNISONE
     Indication: Bronchitis
     Route: 065
  4. AMINOPHYLLINE [Concomitant]
     Active Substance: AMINOPHYLLINE
     Indication: Bronchitis
     Route: 065
  5. Cefpazone [Concomitant]
     Dosage: Q8H
     Route: 065
     Dates: start: 20220423, end: 20220427
  6. LEVOFLOXACIN [Concomitant]
     Active Substance: LEVOFLOXACIN
     Route: 065
     Dates: start: 20220423, end: 20220427

REACTIONS (1)
  - Strongyloidiasis [Fatal]

NARRATIVE: CASE EVENT DATE: 20220427
